FAERS Safety Report 17184274 (Version 1)
Quarter: 2019Q4

REPORT INFORMATION
  Report Type: Spontaneous
  Country: US (occurrence: US)
  Receive Date: 20191220
  Receipt Date: 20191220
  Transmission Date: 20200122
  Serious: No
  Sender: FDA-Public Use
  Company Number: US-RECKITT BENCKISER HEALTHCARE INT LIMITED-RB-89966-2019

PATIENT
  Age: 32 Year
  Sex: Female
  Weight: 150 kg

DRUGS (1)
  1. DELSYM [Suspect]
     Active Substance: DEXTROMETHORPHAN
     Indication: PRODUCT USED FOR UNKNOWN INDICATION
     Dosage: TOOK 40 ML AT 4 TIMES
     Route: 065
     Dates: start: 20190905, end: 20190907

REACTIONS (1)
  - Drug ineffective [Recovered/Resolved]
